FAERS Safety Report 5234840-6 (Version None)
Quarter: 2007Q1

REPORT INFORMATION
  Report Type: 
  Country: None (occurrence: None)
  Receive Date: 20070209
  Receipt Date: 20070130
  Transmission Date: 20070707
  Serious: Yes (Other)
  Sender: FDA-Public Use
  Company Number: AT-PFIZER INC-2007006601

PATIENT
  Sex: Female
  Weight: 60 kg

DRUGS (5)
  1. ZELDOX (CAPSULES) [Suspect]
     Indication: DELUSION OF REFERENCE
     Route: 048
  2. SOLIAN [Suspect]
     Indication: DELUSION OF REFERENCE
  3. CITALOPRAM HYDROBROMIDE [Concomitant]
     Route: 048
  4. TRAZODONE HCL [Concomitant]
     Route: 048
  5. XANOR [Concomitant]
     Route: 048

REACTIONS (3)
  - BLOOD PROLACTIN INCREASED [None]
  - BREAST ABSCESS [None]
  - MASTITIS [None]
